FAERS Safety Report 9806125 (Version 2)
Quarter: 2014Q1

REPORT INFORMATION
  Report Type: Spontaneous
  Country: US (occurrence: US)
  Receive Date: 20140109
  Receipt Date: 20140110
  Transmission Date: 20141002
  Serious: No
  Sender: FDA-Public Use
  Company Number: US-009507513-1401USA002439

PATIENT
  Age: 26 Year
  Sex: Female

DRUGS (9)
  1. IMPLANON [Suspect]
     Indication: CONTRACEPTION
     Dosage: UNK
     Route: 059
     Dates: start: 20121211
  2. LEXAPRO [Concomitant]
  3. KLONOPIN [Concomitant]
  4. AMBIEN [Concomitant]
  5. AMOXIL [Concomitant]
  6. CLORHEXIDINA LACER [Concomitant]
  7. IBUPROFEN [Concomitant]
  8. OPTIMOX IODORAL [Concomitant]
  9. PROAIR (ALBUTEROL SULFATE) [Concomitant]

REACTIONS (2)
  - Menorrhagia [Unknown]
  - Implant site pain [Unknown]
